FAERS Safety Report 14386203 (Version 1)
Quarter: 2018Q1

REPORT INFORMATION
  Report Type: Spontaneous
  Country: US (occurrence: US)
  Receive Date: 20180115
  Receipt Date: 20180115
  Transmission Date: 20180509
  Serious: Yes (Other)
  Sender: FDA-Public Use
  Company Number: US-SA-2017SA074605

PATIENT
  Age: 58 Year
  Sex: Female
  Weight: 113.8 kg

DRUGS (11)
  1. HUMALOG [Concomitant]
     Active Substance: INSULIN LISPRO
  2. TAXOTERE [Suspect]
     Active Substance: DOCETAXEL
     Indication: BREAST CANCER FEMALE
     Route: 051
     Dates: start: 20150513, end: 20150513
  3. VITAMIN D2 [Concomitant]
     Active Substance: ERGOCALCIFEROL
  4. GLIPIZIDE. [Concomitant]
     Active Substance: GLIPIZIDE
  5. CYTOXAN [Concomitant]
     Active Substance: CYCLOPHOSPHAMIDE
     Route: 042
  6. NIFEDIPINE. [Concomitant]
     Active Substance: NIFEDIPINE
  7. CARVEDILOL. [Concomitant]
     Active Substance: CARVEDILOL
  8. TAXOTERE [Suspect]
     Active Substance: DOCETAXEL
     Indication: BREAST CANCER FEMALE
     Route: 051
     Dates: start: 20150218, end: 20150218
  9. SIMVASTATIN. [Concomitant]
     Active Substance: SIMVASTATIN
  10. KLOR-CON [Concomitant]
     Active Substance: POTASSIUM CHLORIDE
  11. NEOSAR [Concomitant]
     Active Substance: CYCLOPHOSPHAMIDE

REACTIONS (1)
  - Alopecia [Not Recovered/Not Resolved]

NARRATIVE: CASE EVENT DATE: 201502
